FAERS Safety Report 8572055-4 (Version None)
Quarter: 2012Q3

REPORT INFORMATION
  Report Type: 
  Country: None (occurrence: None)
  Receive Date: 20120806
  Receipt Date: 20120730
  Transmission Date: 20120928
  Serious: Yes (Other)
  Sender: FDA-Public Use
  Company Number: GB-SANOFI-AVENTIS-2012SA054424

PATIENT
  Age: 73 Year
  Sex: Male

DRUGS (2)
  1. ALL OTHER THERAPEUTIC PRODUCTS [Concomitant]
  2. CLOPIDOGREL BISULFATE [Suspect]

REACTIONS (5)
  - THROAT CANCER [None]
  - DYSPHAGIA [None]
  - HYPERTENSION [None]
  - BLOOD CHOLESTEROL ABNORMAL [None]
  - OEDEMA [None]
